FAERS Safety Report 4544444-6 (Version None)
Quarter: 2005Q1

REPORT INFORMATION
  Report Type: 
  Country: None (occurrence: None)
  Receive Date: 20050104
  Receipt Date: 20041223
  Transmission Date: 20050727
  Serious: Yes (Hospitalization)
  Sender: FDA-Public Use
  Company Number: 2004028541

PATIENT
  Age: 54 Year
  Sex: Female
  Weight: 90 kg

DRUGS (3)
  1. RHINOPRONT KOMBI            (PSEUDOEPHEDRINE, TRIPROLIDINE) [Suspect]
     Indication: NASOPHARYNGITIS
     Dosage: 2 TABLETS TID, ORAL
     Route: 048
     Dates: start: 20031001, end: 20031024
  2. BECLOMETHASONE DIPROPIONATE [Concomitant]
  3. ACETYLCYSTEINE [Concomitant]

REACTIONS (2)
  - DRUG ERUPTION [None]
  - RASH MACULO-PAPULAR [None]
